FAERS Safety Report 18577497 (Version 2)
Quarter: 2021Q3

REPORT INFORMATION
  Report Type: Spontaneous
  Country: ES (occurrence: ES)
  Receive Date: 20201204
  Receipt Date: 20210902
  Transmission Date: 20211014
  Serious: Yes (Other)
  Sender: FDA-Public Use
  Company Number: ES-MACLEODS PHARMA UK LTD-MAC2020029287

PATIENT

DRUGS (1)
  1. OLMESARTAN MEDOXOMIL. [Suspect]
     Active Substance: OLMESARTAN MEDOXOMIL
     Indication: HYPERTENSION
     Dosage: 40 MILLIGRAM, QD
     Route: 065

REACTIONS (7)
  - Weight decreased [Recovered/Resolved]
  - Drug-induced liver injury [Recovered/Resolved]
  - Lymphocytic infiltration [Recovered/Resolved]
  - Hepatic steatosis [Recovered/Resolved]
  - Antinuclear antibody positive [Recovered/Resolved]
  - Hepatic fibrosis [Recovered/Resolved]
  - Asthenia [Recovered/Resolved]
